FAERS Safety Report 8579213-3 (Version None)
Quarter: 2012Q3

REPORT INFORMATION
  Report Type: 
  Country: None (occurrence: None)
  Receive Date: 20120808
  Receipt Date: 20120802
  Transmission Date: 20120928
  Serious: Yes (Death, Other)
  Sender: FDA-Public Use
  Company Number: US-GILEAD-2012-0058779

PATIENT
  Sex: Female

DRUGS (1)
  1. LETAIRIS [Suspect]
     Indication: PRODUCT USED FOR UNKNOWN INDICATION
     Dosage: 5 MG, UNK
     Route: 048
     Dates: start: 20120206

REACTIONS (4)
  - RED BLOOD CELL COUNT DECREASED [None]
  - DEATH [None]
  - LABORATORY TEST ABNORMAL [None]
  - NERVOUS SYSTEM DISORDER [None]
